FAERS Safety Report 18159505 (Version 1)
Quarter: 2020Q3

REPORT INFORMATION
  Report Type: Spontaneous
  Country: KR (occurrence: KR)
  Receive Date: 20200817
  Receipt Date: 20200817
  Transmission Date: 20201103
  Serious: Yes (Other)
  Sender: FDA-Public Use
  Company Number: KR-JNJFOC-20200813084

PATIENT
  Sex: Male
  Weight: 45.9 kg

DRUGS (3)
  1. REMICADE [Suspect]
     Active Substance: INFLIXIMAB
     Indication: CROHN^S DISEASE
     Route: 042
     Dates: start: 201707
  2. REMICADE [Suspect]
     Active Substance: INFLIXIMAB
     Route: 042
     Dates: start: 201802, end: 201808
  3. AZATHIOPRINE. [Concomitant]
     Active Substance: AZATHIOPRINE

REACTIONS (6)
  - Therapeutic product effect decreased [Recovered/Resolved]
  - Infusion related reaction [Unknown]
  - Abdominal pain [Unknown]
  - Anal abscess [Recovered/Resolved]
  - Impaired healing [Unknown]
  - Anal fistula [Unknown]

NARRATIVE: CASE EVENT DATE: 201802
